FAERS Safety Report 13265896 (Version 2)
Quarter: 2017Q2

REPORT INFORMATION
  Report Type: Report from Study
  Country: US (occurrence: US)
  Receive Date: 20170223
  Receipt Date: 20170425
  Transmission Date: 20170830
  Serious: Yes (Hospitalization)
  Sender: FDA-Public Use
  Company Number: US-EISAI MEDICAL RESEARCH-EC-2017-025060

PATIENT
  Age: 55 Year
  Sex: Female

DRUGS (3)
  1. LENVIMA [Suspect]
     Active Substance: LENVATINIB
     Indication: THYROID CANCER
     Route: 048
     Dates: start: 20161230, end: 20170213
  2. LISINOPRIL. [Concomitant]
     Active Substance: LISINOPRIL
  3. LENVIMA [Suspect]
     Active Substance: LENVATINIB
     Route: 048
     Dates: start: 2017

REACTIONS (10)
  - Mouth ulceration [Unknown]
  - Bone pain [Unknown]
  - Skin ulcer [Unknown]
  - Cholecystitis [Unknown]
  - Headache [Unknown]
  - Skin exfoliation [Unknown]
  - Hypertension [Unknown]
  - Dysphonia [Unknown]
  - Nasal ulcer [Unknown]
  - Dyspepsia [Unknown]

NARRATIVE: CASE EVENT DATE: 2017
